FAERS Safety Report 5034799-0 (Version None)
Quarter: 2006Q2

REPORT INFORMATION
  Report Type: 
  Country: None (occurrence: None)
  Receive Date: 20060509
  Receipt Date: 20050720
  Transmission Date: 20061013
  Serious: Yes (Other)
  Sender: FDA-Public Use
  Company Number: 411536

PATIENT
  Age: 56 Year
  Sex: Female
  Weight: 90.7 kg

DRUGS (2)
  1. NAPROSYN [Suspect]
     Indication: PAIN
     Dosage: 500 MG 2 PER DAY ORAL
     Route: 048
     Dates: start: 20000615, end: 20050215
  2. HYZAAR (HYDROCHLOROTHIAZISE/LOSARTAN POTASSIUM) [Concomitant]

REACTIONS (5)
  - ABDOMINAL PAIN UPPER [None]
  - DYSPEPSIA [None]
  - GASTRIC ULCER [None]
  - GASTRITIS [None]
  - OESOPHAGEAL PAIN [None]
